FAERS Safety Report 4617803-0 (Version None)
Quarter: 2005Q1

REPORT INFORMATION
  Report Type: 
  Country: None (occurrence: None)
  Receive Date: 20050322
  Receipt Date: 20050309
  Transmission Date: 20050727
  Serious: Yes (Hospitalization)
  Sender: FDA-Public Use
  Company Number: 2005043001

PATIENT
  Age: 54 Year
  Sex: Male

DRUGS (3)
  1. NEURONTIN [Suspect]
     Indication: POLYNEUROPATHY
     Dosage: 900 MG (300 MG 3 IN 1 D), ORAL
     Route: 048
     Dates: start: 20040101
  2. CLONAZEPAM [Suspect]
     Indication: POLYNEUROPATHY
     Dosage: 10 DROP, ORAL
     Route: 048
  3. INSULIN [Concomitant]

REACTIONS (1)
  - VITAMIN B12 DEFICIENCY [None]
